FAERS Safety Report 9690976 (Version 1)
Quarter: 2013Q4

REPORT INFORMATION
  Report Type: Spontaneous
  Country: US (occurrence: US)
  Receive Date: 20131115
  Receipt Date: 20131115
  Transmission Date: 20140711
  Serious: No
  Sender: FDA-Public Use
  Company Number: US-PFIZER INC-2013324165

PATIENT
  Sex: 0

DRUGS (4)
  1. LIPITOR [Suspect]
     Dosage: UNK
  2. PREMARIN [Suspect]
     Dosage: UNK
  3. PROTONIX [Suspect]
     Dosage: UNK
  4. EFFEXOR XR [Suspect]
     Dosage: UNK

REACTIONS (1)
  - Hot flush [Unknown]
